FAERS Safety Report 10383656 (Version 1)
Quarter: 2014Q1

REPORT INFORMATION
  Report Type: Spontaneous
  Country: US (occurrence: None)
  Receive Date: 20140306
  Receipt Date: 20140306
  Transmission Date: 20141002
  Serious: Yes (Hospitalization)
  Sender: FDA-Public Use
  Company Number: 163-21880-13081086

PATIENT
  Age: 74 Year
  Sex: Male
  Weight: 82.1 kg

DRUGS (18)
  1. REVLIMID (LENALIDOMIDE) (CAPSULE) [Suspect]
     Indication: PLASMA CELL MYELOMA
     Dosage: 21 IN 21D
     Route: 048
     Dates: start: 20130115, end: 20130806
  2. MLN9708/PLACEBO (IXAZOMIB) [Suspect]
     Indication: PLASMA CELL MYELOMA
     Route: 048
     Dates: start: 20130115, end: 20130806
  3. DEXAMETHASONE (DEXAMETHASONE) [Suspect]
     Indication: PLASMA CELL MYELOMA
     Route: 048
     Dates: start: 20130115, end: 20130806
  4. DILTIAZEM (DILTIAZEM) [Concomitant]
  5. NORMAL SALINE (SODIUIM CHLORIDE) [Concomitant]
  6. ACYCLOVIR (ACYCLOVIR) [Concomitant]
  7. PANTOPRAZOLE (PANTOPRAZOLE) [Concomitant]
  8. METOPROLOL TARTRATE (METOPROLOL TARTRATE) [Concomitant]
  9. OXYCODONE (OXYCODONE) [Concomitant]
  10. OMEPRAZOLE (OMEPRAZOLE) [Concomitant]
  11. HYTRIN (TERAZOSIN HYDROCHLORIDE) [Concomitant]
  12. ZOMETA (ZOLEDRONIC ACID) [Concomitant]
  13. COUMADIN (WARFARIN SODIUM) [Concomitant]
  14. MOTRIN (IBUPROFEN) [Concomitant]
  15. SENOKOT (SENNA FRUIT) [Concomitant]
  16. ZOVIRAX (ACICLOVIR) [Concomitant]
  17. OXYCODONE/PARACETAMOL (OXYCODNE/APAP [Concomitant]
  18. AFRIN NASAL SPRAY (OXYMETAZOLINE HYDROCHLORIDE) (LIQUID) [Concomitant]

REACTIONS (1)
  - Atrial fibrillation [None]
